FAERS Safety Report 8370281-0 (Version None)
Quarter: 2012Q2

REPORT INFORMATION
  Report Type: 
  Country: None (occurrence: None)
  Receive Date: 20120518
  Receipt Date: 20120217
  Transmission Date: 20120825
  Serious: No
  Sender: FDA-Public Use
  Company Number: US-ASTRAZENECA-2012SE13904

PATIENT
  Age: 82 Year
  Sex: Female

DRUGS (5)
  1. EXELON [Concomitant]
     Dosage: UNKNOWN
  2. LISINOPRIL [Concomitant]
     Dosage: UNKNOWN
  3. PRILOSEC OTC [Suspect]
     Indication: ABDOMINAL PAIN UPPER
     Dosage: 1 TABLET, 1 /DAY FOR 2 DAYS
     Route: 048
     Dates: start: 20120215, end: 20120216
  4. PAROXETINE [Concomitant]
     Dosage: UNKNOWN
  5. LEVETIRACETAM [Concomitant]
     Dosage: UNKNOWN

REACTIONS (3)
  - FAECES DISCOLOURED [None]
  - FAECAL INCONTINENCE [None]
  - DIARRHOEA [None]
